FAERS Safety Report 8808094 (Version 3)
Quarter: 2015Q3

REPORT INFORMATION
  Report Type: Report from Study
  Country: FR (occurrence: FR)
  Receive Date: 20120925
  Receipt Date: 20150925
  Transmission Date: 20151125
  Serious: Yes (Hospitalization, Other)
  Sender: FDA-Public Use
  Company Number: FR-ROCHE-1123311

PATIENT
  Sex: Female
  Weight: 66 kg

DRUGS (34)
  1. METRONIDAZOLE. [Suspect]
     Active Substance: METRONIDAZOLE
     Route: 065
  2. KETUM [Concomitant]
     Active Substance: KETOPROFEN
  3. INEXIUM [Concomitant]
     Active Substance: ESOMEPRAZOLE
     Route: 065
  4. ACLASTA [Concomitant]
     Active Substance: ZOLEDRONIC ACID
     Route: 065
  5. CORDARONE [Concomitant]
     Active Substance: AMIODARONE HYDROCHLORIDE
     Route: 065
  6. BISOPROLOL [Concomitant]
     Active Substance: BISOPROLOL
     Route: 065
  7. PREDNISONE. [Suspect]
     Active Substance: PREDNISONE
     Dosage: ON 23/MAY/2013, THERAPY WITH PREDNISONE 17.5 MG/DAY WAS ONGOING.
     Route: 065
  8. NOVATREX NOS [Concomitant]
     Active Substance: AZITHROMYCIN OR METHOTREXATE SODIUM
     Route: 065
     Dates: start: 20110621
  9. MONO-TILDIEM [Concomitant]
     Active Substance: DILTIAZEM HYDROCHLORIDE
     Route: 065
  10. COOLMETEC [Concomitant]
     Active Substance: HYDROCHLOROTHIAZIDE\OLMESARTAN MEDOXOMIL
     Route: 065
  11. CORDARONE [Concomitant]
     Active Substance: AMIODARONE HYDROCHLORIDE
     Route: 065
  12. PREDNISONE. [Suspect]
     Active Substance: PREDNISONE
     Indication: RHEUMATOID ARTHRITIS
     Dosage: ON 12/APR/2013, THERAPY WITH PREDNISONE 12.5 MG/DAY WAS ONGOING.
     Route: 065
  13. METRONIDAZOLE. [Suspect]
     Active Substance: METRONIDAZOLE
     Indication: INFECTION
     Route: 065
  14. METRONIDAZOLE. [Suspect]
     Active Substance: METRONIDAZOLE
     Route: 065
  15. NOVATREX NOS [Concomitant]
     Active Substance: AZITHROMYCIN OR METHOTREXATE SODIUM
     Indication: RHEUMATOID ARTHRITIS
     Route: 065
  16. FIXICAL [Concomitant]
     Active Substance: CALCIUM CARBONATE
     Route: 065
  17. CLAMOXYL (FRANCE) [Concomitant]
     Active Substance: AMOXICILLIN\CLAVULANIC ACID
     Route: 065
  18. EFFERALGAN CODEINE [Concomitant]
     Active Substance: ACETAMINOPHEN\CODEINE PHOSPHATE
     Route: 065
  19. COUMADINE [Concomitant]
     Active Substance: WARFARIN SODIUM
     Route: 065
  20. BISOPROLOL [Concomitant]
     Active Substance: BISOPROLOL
     Route: 065
  21. TOCILIZUMAB [Suspect]
     Active Substance: TOCILIZUMAB
     Indication: RHEUMATOID ARTHRITIS
     Dosage: 500 MG THERAPY STOPPED ON 21/JUN/2011
     Route: 042
     Dates: start: 20101029, end: 20110518
  22. TOCILIZUMAB [Suspect]
     Active Substance: TOCILIZUMAB
     Route: 042
     Dates: start: 20101123
  23. TOCILIZUMAB [Suspect]
     Active Substance: TOCILIZUMAB
     Route: 042
     Dates: start: 20101221
  24. PREDNISONE. [Suspect]
     Active Substance: PREDNISONE
     Route: 065
     Dates: start: 20110621
  25. PREDNISONE. [Suspect]
     Active Substance: PREDNISONE
     Dosage: ON 16/SEP/2013, THERAPY WITH PREDNISONE 15 MG/DAY WAS ONGOING.
     Route: 065
  26. DIFFU K [Concomitant]
     Active Substance: POTASSIUM CHLORIDE
     Route: 065
  27. KARDEGIC [Concomitant]
     Active Substance: ASPIRIN LYSINE
     Route: 065
  28. SPECIAFOLDINE [Concomitant]
     Active Substance: FOLIC ACID
     Route: 065
  29. COUMADINE [Concomitant]
     Active Substance: WARFARIN SODIUM
     Route: 065
  30. ZOPICLONE [Concomitant]
     Active Substance: ZOPICLONE
     Route: 065
  31. AMLOR [Concomitant]
     Active Substance: AMLODIPINE BESYLATE
     Route: 065
  32. COOLMETEC [Concomitant]
     Active Substance: HYDROCHLOROTHIAZIDE\OLMESARTAN MEDOXOMIL
     Route: 065
  33. CLAMOXYL (FRANCE) [Concomitant]
     Active Substance: AMOXICILLIN\CLAVULANIC ACID
     Route: 065
  34. AMLOR [Concomitant]
     Active Substance: AMLODIPINE BESYLATE
     Route: 065

REACTIONS (14)
  - Diverticulitis [Recovered/Resolved]
  - Osteoarthritis [Recovered/Resolved]
  - Angina pectoris [Recovered/Resolved]
  - Asthenia [Not Recovered/Not Resolved]
  - Headache [Not Recovered/Not Resolved]
  - Large intestine perforation [Recovered/Resolved]
  - Foot deformity [Recovered/Resolved]
  - Abdominal pain upper [Not Recovered/Not Resolved]
  - Atrial fibrillation [Recovered/Resolved]
  - Extremity necrosis [Recovered/Resolved]
  - Skin ulcer [Recovered/Resolved]
  - Transient ischaemic attack [Recovered/Resolved]
  - Angiodermatitis [Recovered/Resolved]
  - Neuropathy peripheral [Not Recovered/Not Resolved]

NARRATIVE: CASE EVENT DATE: 201011
